FAERS Safety Report 5300596-1 (Version None)
Quarter: 2007Q2

REPORT INFORMATION
  Report Type: 
  Country: None (occurrence: None)
  Receive Date: 20070418
  Receipt Date: 20070411
  Transmission Date: 20071010
  Serious: Yes (Death)
  Sender: FDA-Public Use
  Company Number: IE-GLAXOSMITHKLINE-B0466634A

PATIENT
  Age: 38 Year
  Sex: Male

DRUGS (2)
  1. PAROXETINE [Suspect]
     Indication: DRUG USE FOR UNKNOWN INDICATION
  2. CLOZARIL [Suspect]
     Indication: DRUG USE FOR UNKNOWN INDICATION
     Route: 048
     Dates: start: 20031021

REACTIONS (4)
  - CARDIAC DISORDER [None]
  - DEATH [None]
  - FATIGUE [None]
  - WEIGHT INCREASED [None]
